FAERS Safety Report 9402616 (Version 1)
Quarter: 2013Q3

REPORT INFORMATION
  Report Type: Not Available
  Country: FR (occurrence: FR)
  Receive Date: 20130716
  Receipt Date: 20130716
  Transmission Date: 20140515
  Serious: Yes (Hospitalization)
  Sender: FDA-Public Use
  Company Number: FR-ASTELLAS-2013EU005862

PATIENT
  Age: 46 Year
  Sex: Female

DRUGS (17)
  1. PROGRAF [Suspect]
     Indication: LUNG TRANSPLANT
     Dosage: UNK MG, UNKNOWN/D
     Route: 048
     Dates: start: 20130414
  2. PROGRAF [Interacting]
     Dosage: 2 MG, BID
     Route: 048
     Dates: start: 20130416, end: 20130417
  3. PROGRAF [Interacting]
     Dosage: 2.5 MG, BID
     Route: 048
     Dates: start: 20130419
  4. PROGRAF [Interacting]
     Dosage: 2.5 MG, BID
     Route: 048
     Dates: start: 20130422
  5. PROGRAF [Interacting]
     Dosage: 3 MG, BID
     Route: 048
     Dates: start: 20130424
  6. PROGRAF [Interacting]
     Dosage: 10 MG, UNKNOWN/D
     Route: 048
  7. NOXAFIL [Interacting]
     Dosage: 400 MG, UNKNOWN/D
     Route: 048
     Dates: start: 20130405
  8. NOXAFIL [Interacting]
     Dosage: 100 MG, TID
     Route: 048
     Dates: start: 20130416, end: 20130417
  9. NOXAFIL [Interacting]
     Dosage: 100 MG, TID
     Route: 048
     Dates: start: 20130419
  10. NOXAFIL [Interacting]
     Dosage: 100 MG, TID
     Route: 048
     Dates: start: 20130422
  11. NOXAFIL [Interacting]
     Dosage: 100 MG, TID
     Route: 048
     Dates: start: 20130424
  12. CELLCEPT                           /01275102/ [Concomitant]
     Dosage: 1 G, UNKNOWN/D
     Route: 065
  13. CORTANCYL [Concomitant]
     Dosage: 20 MG, UNKNOWN/D
     Route: 065
  14. VALACICLOVIR [Concomitant]
     Dosage: 2 G, UNKNOWN/D
     Route: 065
  15. FANSIDAR [Concomitant]
     Dosage: UNK DF, WEEKLY
     Route: 065
  16. LEDERFOLIN [Concomitant]
     Dosage: UNK DF, WEEKLY
     Route: 065
  17. ALFALASTIN [Concomitant]
     Dosage: 3 G, WEEKLY
     Route: 065

REACTIONS (5)
  - Drug interaction [Recovered/Resolved]
  - Off label use [Unknown]
  - Tremor [Recovered/Resolved]
  - Nightmare [Recovered/Resolved]
  - Hallucination [Recovered/Resolved]
